FAERS Safety Report 6998654-9 (Version None)
Quarter: 2010Q3

REPORT INFORMATION
  Report Type: 
  Country: None (occurrence: None)
  Receive Date: 20100920
  Receipt Date: 20100107
  Transmission Date: 20110219
  Serious: No
  Sender: FDA-Public Use
  Company Number: US-ASTRAZENECA-2010SE01076

PATIENT
  Age: 991 Month
  Sex: Female
  Weight: 49.9 kg

DRUGS (2)
  1. SEROQUEL XR [Suspect]
     Indication: DEPRESSION
     Route: 048
  2. ZOLOFT [Concomitant]

REACTIONS (2)
  - DEPRESSION [None]
  - UNDERDOSE [None]
